FAERS Safety Report 5197277-4 (Version None)
Quarter: 2007Q1

REPORT INFORMATION
  Report Type: 
  Country: None (occurrence: None)
  Receive Date: 20070103
  Receipt Date: 20061212
  Transmission Date: 20070707
  Serious: Yes (Other)
  Sender: FDA-Public Use
  Company Number: 2006SE06675

PATIENT

DRUGS (1)
  1. SEROQUEL [Suspect]

REACTIONS (2)
  - METABOLIC DISORDER [None]
  - METABOLIC SYNDROME [None]
